FAERS Safety Report 22917326 (Version 2)
Quarter: 2024Q1

REPORT INFORMATION
  Report Type: Spontaneous
  Country: US (occurrence: US)
  Receive Date: 20230907
  Receipt Date: 20240223
  Transmission Date: 20240410
  Serious: No
  Sender: FDA-Public Use
  Company Number: US-MYLANLABS-2023M1091314

PATIENT
  Sex: Female

DRUGS (2)
  1. SEMGLEE (INSULIN GLARGINE-YFGN) [Suspect]
     Active Substance: INSULIN GLARGINE-YFGN
     Indication: Diabetes mellitus
     Dosage: UNK
     Route: 058
     Dates: start: 20230825
  2. DEVICE [Suspect]
     Active Substance: DEVICE
     Indication: Diabetes mellitus

REACTIONS (2)
  - Wrong technique in product usage process [Unknown]
  - Device delivery system issue [Unknown]
